FAERS Safety Report 11692658 (Version 9)
Quarter: 2017Q1

REPORT INFORMATION
  Report Type: Spontaneous
  Country: US (occurrence: US)
  Receive Date: 20151103
  Receipt Date: 20170227
  Transmission Date: 20170428
  Serious: Yes (Hospitalization, Congenital Anomaly, Other)
  Sender: FDA-Public Use
  Company Number: PHEH2015US022162

PATIENT
  Sex: Male

DRUGS (5)
  1. ONDANSETRON HYDROCHLORIDE. [Suspect]
     Active Substance: ONDANSETRON HYDROCHLORIDE
     Indication: FOETAL EXPOSURE DURING PREGNANCY
     Dosage: MOTHER DOSE: 4 MG, UNK
     Route: 064
  2. ONDANSETRON [Suspect]
     Active Substance: ONDANSETRON
     Indication: FOETAL EXPOSURE DURING PREGNANCY
     Dosage: MOTHER^S DOSE: 4 MG, PRN
     Route: 064
  3. ONDANSETRON HYDROCHLORIDE. [Suspect]
     Active Substance: ONDANSETRON HYDROCHLORIDE
     Indication: FOETAL EXPOSURE DURING PREGNANCY
     Route: 064
  4. ONDANSETRON AUROBINDO [Suspect]
     Active Substance: ONDANSETRON HYDROCHLORIDE
     Indication: FOETAL EXPOSURE DURING PREGNANCY
     Dosage: MOTHER^S DOSE: 4 MG, PRN
     Route: 064
  5. ZOFRAN [Suspect]
     Active Substance: ONDANSETRON HYDROCHLORIDE
     Indication: FOETAL EXPOSURE DURING PREGNANCY
     Dosage: MOTHER DOSE: 04 MG, PRN
     Route: 064

REACTIONS (43)
  - Fallot^s tetralogy [Unknown]
  - Dehydration [Unknown]
  - Pyrexia [Unknown]
  - Foetal exposure during pregnancy [Unknown]
  - Pain [Unknown]
  - Injury [Unknown]
  - Cardiac murmur [Unknown]
  - Congenital anomaly [Unknown]
  - Hypovolaemic shock [Unknown]
  - Pulmonary valve incompetence [Unknown]
  - Eye disorder [Unknown]
  - Chronic sinusitis [Unknown]
  - Right ventricular enlargement [Unknown]
  - Bronchiolitis [Unknown]
  - Cardiomegaly [Unknown]
  - Upper respiratory tract infection [Unknown]
  - Multiple congenital abnormalities [Unknown]
  - Ventricular septal defect [Unknown]
  - Right ventricular hypertrophy [Unknown]
  - Bundle branch block right [Unknown]
  - Viral infection [Unknown]
  - Rhinitis allergic [Unknown]
  - Anxiety [Unknown]
  - Heart disease congenital [Unknown]
  - Pulmonary hypoplasia [Unknown]
  - Dacryostenosis congenital [Unknown]
  - Acute respiratory failure [Unknown]
  - Bronchial hyperreactivity [Unknown]
  - Pneumonia viral [Unknown]
  - Pleural effusion [Unknown]
  - Otitis media [Recovered/Resolved]
  - Rhinorrhoea [Unknown]
  - Eczema [Unknown]
  - Tachypnoea [Unknown]
  - Dyspnoea [Unknown]
  - Anhedonia [Unknown]
  - Nasal congestion [Unknown]
  - Pulmonary artery stenosis congenital [Unknown]
  - Atrial septal defect [Unknown]
  - Asthma [Unknown]
  - Sinus tachycardia [Unknown]
  - Cardiac failure [Unknown]
  - Selective eating disorder [Unknown]
